FAERS Safety Report 5699632-2 (Version None)
Quarter: 2008Q2

REPORT INFORMATION
  Report Type: 
  Country: None (occurrence: None)
  Receive Date: 20080410
  Receipt Date: 20080402
  Transmission Date: 20081010
  Serious: Yes (Other)
  Sender: FDA-Public Use
  Company Number: PHEH2008US03390

PATIENT

DRUGS (3)
  1. LESCOL [Suspect]
  2. LIPITOR [Suspect]
  3. ZOCOR [Suspect]

REACTIONS (1)
  - AMYLOIDOSIS [None]
